FAERS Safety Report 8601212-3 (Version None)
Quarter: 2012Q3

REPORT INFORMATION
  Report Type: 
  Country: None (occurrence: None)
  Receive Date: 20120805
  Receipt Date: 20120725
  Transmission Date: 20120928
  Serious: Yes (Death)
  Sender: FDA-Public Use
  Company Number: 2012MA009134

PATIENT
  Age: 24 Year
  Sex: Male

DRUGS (5)
  1. KADIAN [Suspect]
     Indication: DRUG ABUSE
     Dosage: PO
     Route: 048
  2. ALPRAZOLAM [Suspect]
     Indication: DRUG ABUSE
     Dosage: PO
     Route: 048
  3. DIAZEPAM [Suspect]
     Indication: DRUG ABUSE
     Dosage: PO
     Route: 048
  4. ACETAMINOPHEN AND HYDROCODONE BITARTRATE [Suspect]
     Indication: DRUG ABUSE
     Dosage: PO
     Route: 048
  5. METHAMPHETAMINE HYDROCHLORIDE [Suspect]
     Indication: DRUG ABUSE
     Dosage: PO
     Route: 048

REACTIONS (7)
  - UNRESPONSIVE TO STIMULI [None]
  - PULMONARY OEDEMA [None]
  - DRUG ABUSE [None]
  - SNORING [None]
  - TOXICITY TO VARIOUS AGENTS [None]
  - PULMONARY CONGESTION [None]
  - ACCIDENTAL DEATH [None]
